FAERS Safety Report 19507955 (Version 2)
Quarter: 2021Q3

REPORT INFORMATION
  Report Type: Other
  Country: US (occurrence: US)
  Receive Date: 20210708
  Receipt Date: 20210715
  Transmission Date: 20211014
  Serious: Yes (Life-Threatening, Hospitalization, Other)
  Sender: FDA-Public Use
  Company Number: US-DEXPHARM-20210688

PATIENT
  Age: 30 Year
  Sex: Male

DRUGS (7)
  1. DEXAMETHASONE. [Suspect]
     Active Substance: DEXAMETHASONE
  2. METHOTREXATE. [Suspect]
     Active Substance: METHOTREXATE
  3. CYCLOPHOSPHAMIDE. [Suspect]
     Active Substance: CYCLOPHOSPHAMIDE
  4. VINCRISTINE [Suspect]
     Active Substance: VINCRISTINE
  5. ETOPOSIDE. [Suspect]
     Active Substance: ETOPOSIDE
  6. MITOXANTRONE [Suspect]
     Active Substance: MITOXANTRONE HYDROCHLORIDE
  7. LEUCOVORIN. [Suspect]
     Active Substance: LEUCOVORIN

REACTIONS (1)
  - Gastrointestinal wall thickening [Unknown]
